FAERS Safety Report 16187217 (Version 2)
Quarter: 2019Q3

REPORT INFORMATION
  Report Type: Report from Study
  Country: US (occurrence: US)
  Receive Date: 20190411
  Receipt Date: 20190813
  Transmission Date: 20191004
  Serious: Yes (Other)
  Sender: FDA-Public Use
  Company Number: US-TESAROUBC-2019-TSO01476-US

PATIENT
  Age: 60 Year
  Sex: Female
  Weight: 107.3 kg

DRUGS (21)
  1. CARBOPLATIN. [Concomitant]
     Active Substance: CARBOPLATIN
     Indication: PRODUCT USED FOR UNKNOWN INDICATION
     Dosage: 6 CYCLES
  2. VITAMIN D3 [Concomitant]
     Active Substance: CHOLECALCIFEROL
     Indication: PRODUCT USED FOR UNKNOWN INDICATION
     Dosage: 1(10000 UNITS) CAPSULE ORAL DAILY
  3. LIPITOR [Concomitant]
     Active Substance: ATORVASTATIN CALCIUM
     Indication: HYPERCHOLESTEROLAEMIA
     Dosage: 1 ( 10 MG) TABLET ORAL DAILY
     Dates: start: 201209
  4. CRANBERRY                          /01512301/ [Concomitant]
     Active Substance: CRANBERRY
     Indication: PROPHYLAXIS URINARY TRACT INFECTION
     Dosage: 360 MG ORAL DAILY
     Dates: start: 20180625
  5. FLUOCINOLONE [Concomitant]
     Active Substance: FLUOCINOLONE
     Indication: PHOTOSENSITIVITY REACTION
     Dosage: APPLY TID AS NEEDED TO AFFECTED AREAS
     Dates: start: 20170807
  6. BETAMETHASONE. [Concomitant]
     Active Substance: BETAMETHASONE
     Indication: RASH
     Dosage: 0.05% TOPICALLY TO RASH BID PRN
     Dates: start: 20190307
  7. SORAFENIB [Concomitant]
     Active Substance: SORAFENIB
     Indication: PRODUCT USED FOR UNKNOWN INDICATION
     Dosage: 6 CYCLES
  8. GABAPENTIN. [Concomitant]
     Active Substance: GABAPENTIN
     Indication: NEUROPATHY PERIPHERAL
     Dosage: 1 (300 MG) TABLET ORAL T.I.D.
     Dates: start: 201306
  9. VITAMIN B12 [Concomitant]
     Active Substance: CYANOCOBALAMIN
     Indication: SUPPLEMENTATION THERAPY
     Dosage: 1000 MEG IM Q 4 WEEKS
     Dates: start: 20141117
  10. CARBOPLATIN. [Concomitant]
     Active Substance: CARBOPLATIN
     Dosage: 4 CYCLES
  11. NIRAPARIB [Suspect]
     Active Substance: NIRAPARIB
     Indication: OVARIAN CANCER
     Dosage: 200 MG, UNK
     Route: 048
     Dates: start: 20190324, end: 20190324
  12. LIDOCAINE AND PRILOCAINE [Concomitant]
     Active Substance: LIDOCAINE\PRILOCAINE
     Indication: ANALGESIC THERAPY
     Dosage: TOPICAL PRN
     Dates: start: 20141219
  13. TAXOL [Concomitant]
     Active Substance: PACLITAXEL
     Indication: PRODUCT USED FOR UNKNOWN INDICATION
     Dosage: 6 CYCLES
  14. TAXOL [Concomitant]
     Active Substance: PACLITAXEL
     Dosage: 4 CYCLES
  15. MAGNESIUM OXIDE. [Concomitant]
     Active Substance: MAGNESIUM OXIDE
     Indication: SUPPLEMENTATION THERAPY
     Dosage: 1 P.O. TWICE A DAY
     Dates: start: 20170808
  16. IRON                               /00023503/ [Concomitant]
     Active Substance: IRON
     Indication: PRODUCT USED FOR UNKNOWN INDICATION
     Dosage: TABLET
     Route: 048
     Dates: start: 19800101
  17. PANTOPRAZOLE SODIUM. [Concomitant]
     Active Substance: PANTOPRAZOLE SODIUM
     Indication: GASTROOESOPHAGEAL REFLUX DISEASE
     Dosage: 1 TABLET (OF40 MG), ENTERIC COATED
     Route: 048
     Dates: start: 20140723
  18. EMLA [Concomitant]
     Active Substance: LIDOCAINE\PRILOCAINE
     Indication: LOCAL ANAESTHESIA
     Dosage: 2.5% CREAM-APPLY AS DIRECTED PRIOR TO PORT ACCESS
     Dates: start: 20151221
  19. CIPRO [Concomitant]
     Active Substance: CIPROFLOXACIN HYDROCHLORIDE
     Indication: NEUTROPENIA
     Dosage: 250 MG PO BID X 10 DAYS
     Dates: start: 20190401, end: 20190411
  20. OCUVITE [Concomitant]
     Active Substance: VITAMINS
     Indication: SUPPLEMENTATION THERAPY
     Dosage: 150 MG-30 UNIT-5 MG-150 MG CAPSULE
     Dates: start: 20170710
  21. EVISTA [Concomitant]
     Active Substance: RALOXIFENE HYDROCHLORIDE
     Indication: OSTEOPOROSIS PROPHYLAXIS
     Dosage: 60 MG TABLET DAILY
     Dates: start: 201210

REACTIONS (1)
  - Acute myeloid leukaemia [Not Recovered/Not Resolved]

NARRATIVE: CASE EVENT DATE: 20190403
